FAERS Safety Report 15823996 (Version 1)
Quarter: 2019Q1

REPORT INFORMATION
  Report Type: Spontaneous
  Country: IR (occurrence: IR)
  Receive Date: 20190114
  Receipt Date: 20190114
  Transmission Date: 20190417
  Serious: Yes (Other)
  Sender: FDA-Public Use
  Company Number: PHHY2018IR031262

PATIENT
  Age: 9 Year
  Sex: Female
  Weight: 50 kg

DRUGS (3)
  1. OMNITROPE [Suspect]
     Active Substance: SOMATROPIN
     Dosage: 1.8 MG, UNK
     Route: 058
     Dates: end: 20170622
  2. OMNITROPE [Suspect]
     Active Substance: SOMATROPIN
     Indication: GROWTH HORMONE DEFICIENCY
     Dosage: 1 MG, UNK
     Route: 058
     Dates: start: 20150622
  3. OMNITROPE [Suspect]
     Active Substance: SOMATROPIN
     Dosage: 1.8 MG, UNK
     Route: 058

REACTIONS (7)
  - Petit mal epilepsy [Recovered/Resolved]
  - Headache [Unknown]
  - Mass [Unknown]
  - Headache [Recovered/Resolved]
  - Petit mal epilepsy [Unknown]
  - Confusional state [Unknown]
  - Muscle tone disorder [Unknown]

NARRATIVE: CASE EVENT DATE: 20160621
